FAERS Safety Report 4817415-X (Version None)
Quarter: 2005Q4

REPORT INFORMATION
  Report Type: 
  Country: None (occurrence: None)
  Receive Date: 20051031
  Receipt Date: 20051018
  Transmission Date: 20060501
  Serious: Yes (Other)
  Sender: FDA-Public Use
  Company Number: 2005142168

PATIENT
  Age: 42 Year
  Sex: Female
  Weight: 71 kg

DRUGS (3)
  1. LUSTRAL (SERTRALINE) [Suspect]
     Indication: OBSESSIVE-COMPULSIVE DISORDER
     Dosage: 150 MG (150 MG, 1IN 1 D), ORAL
     Route: 048
     Dates: start: 20050913
  2. QUETIAPINE FUMARATE [Concomitant]
  3. PROCYCLIDINE HYDROCHLORIDE 2MG TAB [Concomitant]

REACTIONS (4)
  - BLOOD PROLACTIN INCREASED [None]
  - CONDITION AGGRAVATED [None]
  - CONVULSION [None]
  - DYSARTHRIA [None]
